FAERS Safety Report 25195505 (Version 1)
Quarter: 2025Q2

REPORT INFORMATION
  Report Type: Spontaneous
  Country: US (occurrence: US)
  Receive Date: 20250415
  Receipt Date: 20250415
  Transmission Date: 20250717
  Serious: No
  Sender: SANOFI AVENTIS
  Company Number: US-SA-2025SA103897

PATIENT
  Age: 73 Year
  Sex: Male

DRUGS (16)
  1. DUPIXENT [Suspect]
     Active Substance: DUPILUMAB
     Indication: Chronic obstructive pulmonary disease
     Dosage: 300 MG, QOW
     Route: 058
     Dates: start: 20250307
  2. BUSPIRONE HCL [Concomitant]
     Active Substance: BUSPIRONE HYDROCHLORIDE
  3. CLONAZEPAM [Concomitant]
     Active Substance: CLONAZEPAM
  4. LOSARTAN POTASSIUM [Concomitant]
     Active Substance: LOSARTAN POTASSIUM
  5. TRAZODONE HCL [Concomitant]
     Active Substance: TRAZODONE HYDROCHLORIDE
  6. ALBUTEROL SULFATE [Concomitant]
     Active Substance: ALBUTEROL SULFATE
  7. ALPRAZOLAM [Concomitant]
     Active Substance: ALPRAZOLAM
  8. BUDESONIDE [Concomitant]
     Active Substance: BUDESONIDE
  9. EPCLUSA [Concomitant]
     Active Substance: SOFOSBUVIR\VELPATASVIR
  10. FAMOTIDINE [Concomitant]
     Active Substance: FAMOTIDINE
  11. FUROSEMIDE [Concomitant]
     Active Substance: FUROSEMIDE
  12. INSULIN GLARGINE [Concomitant]
     Active Substance: INSULIN GLARGINE
  13. JANUMET [Concomitant]
     Active Substance: METFORMIN HYDROCHLORIDE\SITAGLIPTIN PHOSPHATE
  14. PREDNISONE [Concomitant]
     Active Substance: PREDNISONE
  15. TAMSULOSIN HYDROCHLORIDE [Concomitant]
     Active Substance: TAMSULOSIN HYDROCHLORIDE
  16. WIXELA INHUB [Concomitant]
     Active Substance: FLUTICASONE PROPIONATE\SALMETEROL XINAFOATE

REACTIONS (1)
  - Diarrhoea [Recovered/Resolved]

NARRATIVE: CASE EVENT DATE: 20250101
